FAERS Safety Report 6541189-8 (Version None)
Quarter: 2010Q1

REPORT INFORMATION
  Report Type: 
  Country: None (occurrence: None)
  Receive Date: 20100118
  Receipt Date: 20100113
  Transmission Date: 20100710
  Serious: Yes (Other)
  Sender: FDA-Public Use
  Company Number: B0625157A

PATIENT
  Sex: Male

DRUGS (8)
  1. AVANDIA [Suspect]
     Route: 048
     Dates: start: 20041213
  2. PROCHLORPERAZINE [Concomitant]
     Route: 048
     Dates: start: 20050107
  3. FENOFIBRATE [Concomitant]
     Route: 048
     Dates: start: 20051213
  4. METFORMIN [Concomitant]
     Dosage: 1500MG PER DAY
     Route: 048
     Dates: start: 20051213
  5. GLICLAZIDE [Concomitant]
     Dosage: 50MG PER DAY
     Route: 048
     Dates: start: 20051213
  6. LISINOPRIL [Concomitant]
     Dosage: 5MG PER DAY
     Route: 048
     Dates: start: 20051213
  7. ASPIRIN [Concomitant]
     Dosage: 75MG PER DAY
     Route: 048
  8. ATENOLOL [Concomitant]
     Dosage: 50MG PER DAY
     Route: 048
     Dates: start: 20040303

REACTIONS (4)
  - ABDOMINAL DISTENSION [None]
  - ABDOMINAL PAIN [None]
  - COLECTOMY [None]
  - SEPSIS [None]
